FAERS Safety Report 5513253-3 (Version None)
Quarter: 2007Q4

REPORT INFORMATION
  Report Type: 
  Country: None (occurrence: None)
  Receive Date: 20071112
  Receipt Date: 20071102
  Transmission Date: 20080405
  Serious: Yes (Hospitalization, Other)
  Sender: FDA-Public Use
  Company Number: US-ELI_LILLY_AND_COMPANY-US200711000712

PATIENT
  Sex: Male
  Weight: 74.83 kg

DRUGS (10)
  1. CYMBALTA [Suspect]
     Indication: DEPRESSION
     Dosage: 20 MG, DAILY (1/D)
     Route: 048
     Dates: start: 20040101
  2. ACTIQ [Concomitant]
     Indication: ABDOMINAL PAIN
     Dosage: 600 UG, EVERY 3 HRS
     Route: 002
     Dates: start: 20040101
  3. ACTIQ [Concomitant]
     Dosage: 600 UG, 3/D
     Route: 002
  4. FENTANYL [Concomitant]
     Indication: PROCTALGIA
     Dosage: 125 UG, OTHER
     Route: 062
     Dates: start: 20040101
  5. FENTANYL [Concomitant]
     Dosage: 12.5 UG, OTHER
     Route: 062
  6. FENTANYL [Concomitant]
     Dosage: 25 UG, OTHER
     Route: 062
  7. FENTANYL [Concomitant]
     Dosage: 75 UG, OTHER
     Route: 062
  8. DEPAKOTE [Concomitant]
     Dates: start: 19990101
  9. GEODON [Concomitant]
     Dates: start: 19990101
  10. VALIUM [Concomitant]
     Dates: start: 20070501

REACTIONS (11)
  - ANOREXIA [None]
  - CONVULSION [None]
  - DRUG WITHDRAWAL SYNDROME [None]
  - FORMICATION [None]
  - HEADACHE [None]
  - INSOMNIA [None]
  - MALAISE [None]
  - NAUSEA [None]
  - RESTLESSNESS [None]
  - STEREOTYPY [None]
  - VOMITING [None]
